FAERS Safety Report 7545219-6 (Version None)
Quarter: 2011Q2

REPORT INFORMATION
  Report Type: 
  Country: None (occurrence: None)
  Receive Date: 20110524
  Receipt Date: 20110310
  Transmission Date: 20111010
  Serious: No
  Sender: FDA-Public Use
  Company Number: 027302

PATIENT
  Sex: Female
  Weight: 56.7 kg

DRUGS (3)
  1. IBUPROFEN [Concomitant]
  2. CIMZIA [Suspect]
     Indication: CROHN'S DISEASE
     Dosage: (400 MG 1X/2 WEEKS, INITIAL DOSE SUBCUTANEOUS) ; (400 MG 1X/4 WEEKS SUBCUTANEOUS)
     Route: 058
     Dates: start: 20100901
  3. CIMZIA [Suspect]
     Indication: CROHN'S DISEASE
     Dosage: (400 MG 1X/2 WEEKS, INITIAL DOSE SUBCUTANEOUS) ; (400 MG 1X/4 WEEKS SUBCUTANEOUS)
     Route: 058
     Dates: start: 20100816

REACTIONS (4)
  - PRURITUS [None]
  - FURUNCLE [None]
  - RECTAL ABSCESS [None]
  - DRY SKIN [None]
